FAERS Safety Report 19584927 (Version 4)
Quarter: 2021Q3

REPORT INFORMATION
  Report Type: Spontaneous
  Country: IT (occurrence: IT)
  Receive Date: 20210720
  Receipt Date: 20210824
  Transmission Date: 20211014
  Serious: Yes (Other)
  Sender: FDA-Public Use
  Company Number: IT-TAKEDA-2021TEU006407

PATIENT
  Age: 19 Year
  Sex: Female

DRUGS (4)
  1. LANSOPRAZOLE. [Suspect]
     Active Substance: LANSOPRAZOLE
     Indication: CHEST PAIN
     Dosage: 15 MILLIGRAM
     Route: 065
  2. LANSOPRAZOLE. [Suspect]
     Active Substance: LANSOPRAZOLE
     Indication: ABDOMINAL PAIN UPPER
     Dosage: UNK
     Route: 065
  3. GAVISCON [Suspect]
     Active Substance: ALUMINUM HYDROXIDE\MAGNESIUM CARBONATE
     Indication: CHEST PAIN
     Dosage: UNK
     Route: 065
  4. GAVISCON [Suspect]
     Active Substance: ALUMINUM HYDROXIDE\MAGNESIUM CARBONATE
     Indication: ABDOMINAL PAIN UPPER
     Dosage: UNK
     Route: 065

REACTIONS (6)
  - Diarrhoea [Unknown]
  - Irritable bowel syndrome [Unknown]
  - Haematochezia [Unknown]
  - Mucous stools [Unknown]
  - Off label use [Unknown]
  - Dyspepsia [Unknown]
